FAERS Safety Report 20609279 (Version 1)
Quarter: 2022Q1

REPORT INFORMATION
  Report Type: Spontaneous
  Country: FR (occurrence: FR)
  Receive Date: 20220317
  Receipt Date: 20220317
  Transmission Date: 20220423
  Serious: Yes (Other)
  Sender: FDA-Public Use
  Company Number: FR-GILEAD-2022-0574028

PATIENT
  Age: 36 Year
  Sex: Male

DRUGS (6)
  1. VIREAD [Suspect]
     Active Substance: TENOFOVIR DISOPROXIL FUMARATE
     Indication: Hepatitis B
     Dosage: 245 MG, QD
     Route: 065
     Dates: start: 202001
  2. VIREAD [Suspect]
     Active Substance: TENOFOVIR DISOPROXIL FUMARATE
     Indication: Hepatitis D
  3. BULEVIRTIDE [Suspect]
     Active Substance: BULEVIRTIDE
     Indication: Hepatitis B
     Dosage: 2 MG, QD
     Route: 065
     Dates: start: 202001
  4. BULEVIRTIDE [Suspect]
     Active Substance: BULEVIRTIDE
     Indication: Hepatitis D
  5. PEGINTERFERON ALFA-2A [Suspect]
     Active Substance: PEGINTERFERON ALFA-2A
     Indication: Hepatitis B
     Dosage: 180 UG, Q1WK
     Route: 065
     Dates: start: 202001, end: 202009
  6. PEGINTERFERON ALFA-2A [Suspect]
     Active Substance: PEGINTERFERON ALFA-2A
     Indication: Hepatitis D

REACTIONS (3)
  - Drug ineffective [Not Recovered/Not Resolved]
  - Virologic failure [Unknown]
  - Hepatitis B DNA assay positive [Unknown]
